FAERS Safety Report 23377717 (Version 1)
Quarter: 2024Q1

REPORT INFORMATION
  Report Type: Spontaneous
  Country: EG (occurrence: EG)
  Receive Date: 20240108
  Receipt Date: 20240108
  Transmission Date: 20240409
  Serious: Yes (Hospitalization, Other)
  Sender: FDA-Public Use
  Company Number: EG-SA-SAC20240105001341

PATIENT
  Age: 67 Year
  Sex: Female

DRUGS (1)
  1. ENOXAPARIN SODIUM [Suspect]
     Active Substance: ENOXAPARIN SODIUM
     Indication: Deep vein thrombosis
     Dosage: 60 MG, Q12H
     Route: 058
     Dates: start: 20231212

REACTIONS (3)
  - Hypophagia [Unknown]
  - Vomiting [Unknown]
  - Haematemesis [Unknown]

NARRATIVE: CASE EVENT DATE: 20231212
